FAERS Safety Report 6267054-1 (Version None)
Quarter: 2009Q3

REPORT INFORMATION
  Report Type: 
  Country: None (occurrence: None)
  Receive Date: 20090714
  Receipt Date: 20090420
  Transmission Date: 20100115
  Serious: No
  Sender: FDA-Public Use
  Company Number: US-BAYER-200919020NA

PATIENT
  Sex: Female

DRUGS (1)
  1. MIRENA [Suspect]
     Indication: CONTRACEPTION
     Route: 015
     Dates: start: 20090327, end: 20090420

REACTIONS (5)
  - ABDOMINAL PAIN [None]
  - GENITAL DISCHARGE [None]
  - IUCD COMPLICATION [None]
  - PAIN [None]
  - VAGINAL HAEMORRHAGE [None]
